FAERS Safety Report 5677464-9 (Version None)
Quarter: 2008Q1

REPORT INFORMATION
  Report Type: 
  Country: None (occurrence: None)
  Receive Date: 20080324
  Receipt Date: 20080312
  Transmission Date: 20080703
  Serious: Yes (Death)
  Sender: FDA-Public Use
  Company Number: DE-PFIZER INC-2008021653

PATIENT
  Age: 48 Year
  Sex: Female

DRUGS (2)
  1. CHAMPIX [Suspect]
     Indication: NICOTINE DEPENDENCE
     Route: 048
  2. ALL OTHER THERAPEUTIC PRODUCTS [Concomitant]

REACTIONS (3)
  - MYOCARDIAL INFARCTION [None]
  - POLYCYTHAEMIA [None]
  - SUDDEN DEATH [None]
